FAERS Safety Report 13993946 (Version 1)
Quarter: 2017Q3

REPORT INFORMATION
  Report Type: Spontaneous
  Country: FR (occurrence: FR)
  Receive Date: 20170916
  Receipt Date: 20170916
  Transmission Date: 20171128
  Serious: Yes (Other)
  Sender: FDA-Public Use
  Company Number: FR-MERCK KGAA-2026532

PATIENT
  Age: 33 Year
  Sex: Male

DRUGS (1)
  1. NOVOTHYROX [Suspect]
     Active Substance: LEVOTHYROXINE SODIUM
     Indication: PRODUCT USED FOR UNKNOWN INDICATION
     Route: 065
     Dates: start: 201704

REACTIONS (4)
  - Alopecia [Unknown]
  - Fatigue [Unknown]
  - Visual impairment [Unknown]
  - Sleep disorder [Unknown]

NARRATIVE: CASE EVENT DATE: 2017
